FAERS Safety Report 11140964 (Version 2)
Quarter: 2015Q2

REPORT INFORMATION
  Report Type: Spontaneous
  Country: JP (occurrence: JP)
  Receive Date: 20150527
  Receipt Date: 20150604
  Transmission Date: 20150821
  Serious: Yes (Other)
  Sender: FDA-Public Use
  Company Number: PHJP2015JP008195

PATIENT
  Age: 80 Year
  Sex: Male

DRUGS (2)
  1. RISEDRONATE SODIUM. [Concomitant]
     Active Substance: RISEDRONATE SODIUM
     Indication: METASTASES TO BONE
     Route: 065
  2. ZOLEDRONATE [Suspect]
     Active Substance: ZOLEDRONIC ACID
     Indication: METASTASES TO SPINE
     Route: 065

REACTIONS (4)
  - Osteonecrosis of jaw [Unknown]
  - Fistula [Unknown]
  - Purulence [Unknown]
  - Oral infection [Unknown]
